FAERS Safety Report 5092497-1 (Version None)
Quarter: 2006Q3

REPORT INFORMATION
  Report Type: 
  Country: None (occurrence: None)
  Receive Date: 20060830
  Receipt Date: 20060823
  Transmission Date: 20061208
  Serious: Yes (Other)
  Sender: FDA-Public Use
  Company Number: 2006UW16872

PATIENT
  Age: 61 Year
  Sex: Female

DRUGS (5)
  1. LOSEC [Suspect]
     Indication: REFLUX OESOPHAGITIS
     Route: 048
     Dates: end: 20060601
  2. LOSEC [Suspect]
     Route: 048
     Dates: start: 20060801
  3. VITAMIN D [Concomitant]
  4. MULTIVITAMIN [Concomitant]
  5. CIPRALAX [Concomitant]
     Route: 048

REACTIONS (3)
  - DRUG INEFFECTIVE [None]
  - OESOPHAGITIS [None]
  - RETINAL DETACHMENT [None]
